FAERS Safety Report 18177012 (Version 1)
Quarter: 2020Q3

REPORT INFORMATION
  Report Type: Report from Study
  Country: None (occurrence: CO)
  Receive Date: 20200821
  Receipt Date: 20200821
  Transmission Date: 20201103
  Serious: Yes (Hospitalization, Other)
  Sender: FDA-Public Use
  Company Number: CO-ABBVIE-20K-036-3416625-00

PATIENT
  Sex: Female
  Weight: 71 kg

DRUGS (2)
  1. HUMIRA [Suspect]
     Active Substance: ADALIMUMAB
     Indication: RHEUMATOID ARTHRITIS
     Route: 058
     Dates: end: 2020
  2. HUMIRA [Suspect]
     Active Substance: ADALIMUMAB
     Indication: RHEUMATOID ARTHRITIS
     Route: 058
     Dates: start: 20120326

REACTIONS (10)
  - Choking [Unknown]
  - Sjogren^s syndrome [Unknown]
  - Osteoporosis [Recovering/Resolving]
  - Blood pressure abnormal [Unknown]
  - Spinal pain [Recovering/Resolving]
  - Intervertebral disc disorder [Recovering/Resolving]
  - Sinusitis [Recovering/Resolving]
  - Pruritus [Unknown]
  - Infection [Unknown]
  - Intervertebral disc space narrowing [Unknown]

NARRATIVE: CASE EVENT DATE: 2017
